FAERS Safety Report 9820331 (Version 1)
Quarter: 2013Q4

REPORT INFORMATION
  Report Type: Spontaneous
  Country: US (occurrence: None)
  Receive Date: 20131028
  Receipt Date: 20131028
  Transmission Date: 20140711
  Serious: Yes (Other)
  Sender: FDA-Public Use
  Company Number: SYM-2013-04751

PATIENT
  Sex: Female

DRUGS (1)
  1. WELLBUTRIN XL [Suspect]
     Indication: DEPRESSION

REACTIONS (23)
  - Suicidal ideation [None]
  - Drug intolerance [None]
  - Influenza like illness [None]
  - Fibromyalgia [None]
  - Diarrhoea [None]
  - Abdominal discomfort [None]
  - Nausea [None]
  - Fatigue [None]
  - Myalgia [None]
  - Muscle spasms [None]
  - Dyspnoea [None]
  - Joint stiffness [None]
  - Dysgeusia [None]
  - Abdominal distension [None]
  - Tinnitus [None]
  - Migraine [None]
  - Chest pain [None]
  - Burning sensation [None]
  - Feeling abnormal [None]
  - Disturbance in attention [None]
  - Headache [None]
  - Dry eye [None]
  - Dry mouth [None]
